FAERS Safety Report 5942226-1 (Version None)
Quarter: 2008Q4

REPORT INFORMATION
  Report Type: 
  Country: None (occurrence: None)
  Receive Date: 20081105
  Receipt Date: 20081027
  Transmission Date: 20090506
  Serious: Yes (Hospitalization)
  Sender: FDA-Public Use
  Company Number: IT-ELI_LILLY_AND_COMPANY-IT200810006386

PATIENT
  Sex: Male
  Weight: 86.6 kg

DRUGS (6)
  1. PEMETREXED [Suspect]
     Indication: HEAD AND NECK CANCER
     Dosage: 400 MG/M2, EVERY THREE WEEKS
     Route: 042
     Dates: start: 20080930
  2. CETUXIMAB [Suspect]
     Indication: HEAD AND NECK CANCER
     Dosage: 250 MG/M2, WEEKLY (1/W)
     Route: 042
     Dates: start: 20080923
  3. RADIATION [Suspect]
     Indication: HEAD AND NECK CANCER
     Dosage: 70 GY
     Route: 065
     Dates: start: 20080930
  4. FOLIC ACID [Concomitant]
     Dosage: 0.4 MG, DAILY (1/D)
     Route: 048
     Dates: start: 20080923
  5. VITAMIN B-12 [Concomitant]
     Dosage: 1000 UG, UNK
     Route: 030
     Dates: start: 20080923
  6. DEXAMETHASONE [Concomitant]
     Dosage: 8 MG, DAILY (1/D)
     Route: 042
     Dates: start: 20081020, end: 20081023

REACTIONS (6)
  - ALANINE AMINOTRANSFERASE INCREASED [None]
  - ASPARTATE AMINOTRANSFERASE INCREASED [None]
  - FEBRILE NEUTROPENIA [None]
  - MUCOSAL INFLAMMATION [None]
  - ODYNOPHAGIA [None]
  - PERFORMANCE STATUS DECREASED [None]
